FAERS Safety Report 15894262 (Version 1)
Quarter: 2019Q1

REPORT INFORMATION
  Report Type: Spontaneous
  Country: AU (occurrence: AU)
  Receive Date: 20190131
  Receipt Date: 20190131
  Transmission Date: 20190417
  Serious: Yes (Death, Hospitalization, Other)
  Sender: FDA-Public Use
  Company Number: AU-SAKK-2019SA026409AA

PATIENT
  Age: 56 Year
  Sex: Male

DRUGS (31)
  1. NOVORAPID [Concomitant]
     Active Substance: INSULIN ASPART
     Dosage: 24 DF, ROUTE OF ADMINISTRATION: INFORMATION NOT PROVIDED BY SPONSOR
  2. OXYNORM [Concomitant]
     Active Substance: OXYCODONE HYDROCHLORIDE
     Dosage: 5 MG, ROUTE OF ADMINISTRATION: INFORMATION NOT PROVIDED BY SPONSOR
  3. METOCLOPRAMIDE HYDROCHLORIDE. [Concomitant]
     Active Substance: METOCLOPRAMIDE HYDROCHLORIDE
     Dosage: 10 MG ROUTE OF ADMINISTRATION: INFORMATION NOT PROVIDED BY SPONSOR
  4. MEROPENEM. [Suspect]
     Active Substance: MEROPENEM
     Indication: PRODUCT USED FOR UNKNOWN INDICATION
     Dosage: ROUTE OF ADMINISTRATION: INFORMATION NOT PROVIDED BY SPONSOR
     Dates: start: 20130312
  5. CASPOFUNGIN ACETATE. [Suspect]
     Active Substance: CASPOFUNGIN ACETATE
     Indication: PRODUCT USED FOR UNKNOWN INDICATION
     Dosage: 70 MG, QD
     Route: 048
     Dates: start: 20130312
  6. PARACETAMOL [Suspect]
     Active Substance: ACETAMINOPHEN
     Indication: PRODUCT USED FOR UNKNOWN INDICATION
     Dosage: UNK
     Route: 048
     Dates: start: 20130307
  7. PREDNISOLONE. [Concomitant]
     Active Substance: PREDNISOLONE
     Dosage: 15 MG, ROUTE OF ADMINISTRATION: INFORMATION NOT PROVIDED BY SPONSOR
  8. RANITIDINE. [Concomitant]
     Active Substance: RANITIDINE
     Dosage: 150 MG, ROUTE OF ADMINISTRATION: INFORMATION NOT PROVIDED BY SPONSOR
  9. CHLORPHENESIN [Concomitant]
     Active Substance: CHLORPHENESIN
  10. MYCOPHENOLATE MOFETIL. [Concomitant]
     Active Substance: MYCOPHENOLATE MOFETIL
     Indication: PRODUCT USED FOR UNKNOWN INDICATION
     Dosage: 500 MG, ROUTE OF ADMINISTRATION: INFORMATION NOT PROVIDED BY SPONSOR
  11. MAGNESIUM ASPARTATE HYDROCHLORIDE [Suspect]
     Active Substance: MAGNESIUM ASPARTATE HYDROCHLORIDE
     Indication: PRODUCT USED FOR UNKNOWN INDICATION
     Dosage: 4 DF, QD
     Route: 048
     Dates: start: 20130306
  12. CHOLECALCIFEROL [Concomitant]
     Active Substance: CHOLECALCIFEROL
  13. MOVICOL [Concomitant]
     Active Substance: POLYETHYLENE GLYCOL 3350\POTASSIUM CHLORIDE\SODIUM BICARBONATE\SODIUM CHLORIDE
     Dosage: 1 DF
  14. ENOXAPARIN SODIUM. [Suspect]
     Active Substance: ENOXAPARIN SODIUM
     Indication: PRODUCT USED FOR UNKNOWN INDICATION
     Dosage: 20 MG, QD
     Route: 058
     Dates: start: 20130309
  15. ACICLOVIR [Suspect]
     Active Substance: ACYCLOVIR
     Indication: PRODUCT USED FOR UNKNOWN INDICATION
     Dosage: 350 MG, QD
     Route: 042
     Dates: start: 20130313
  16. URSODEOXYCHOLIC ACID [Concomitant]
     Active Substance: URSODIOL
     Dosage: 10 MG, ROUTE OF ADMINISTRATION: INFORMATION NOT PROVIDED BY SPONSOR
  17. ONDANSETRON HYDROCHLORIDE. [Suspect]
     Active Substance: ONDANSETRON HYDROCHLORIDE
     Indication: PRODUCT USED FOR UNKNOWN INDICATION
     Dosage: 12 MG, QD
     Dates: start: 20130309
  18. AMBISOME [Suspect]
     Active Substance: AMPHOTERICIN B
     Indication: PRODUCT USED FOR UNKNOWN INDICATION
     Dosage: 40 MG, QD
     Route: 048
     Dates: start: 20130310
  19. AMLODIPINE [Concomitant]
     Active Substance: AMLODIPINE BESYLATE
     Dosage: 10 MG, ROUTE OF ADMINISTRATION: INFORMATION NOT PROVIDED BY SPONSOR
  20. VANCOMYCIN [Suspect]
     Active Substance: VANCOMYCIN
     Indication: PRODUCT USED FOR UNKNOWN INDICATION
     Dosage: 1 G, QD, ROUTE OF ADMINISTRATION: INFORMATION NOT PROVIDED BY SPONSOR
     Dates: start: 20130312
  21. NEUPOGEN [Suspect]
     Active Substance: FILGRASTIM
     Indication: PRODUCT USED FOR UNKNOWN INDICATION
     Dosage: 300 MG, QD
     Route: 058
     Dates: start: 20130312
  22. HYDROCORTISONE. [Concomitant]
     Active Substance: HYDROCORTISONE
     Dosage: 50 MG
     Route: 042
  23. NYSTATIN. [Concomitant]
     Active Substance: NYSTATIN
     Dosage: ROUTE OF ADMINISTRATION: INFORMATION NOT PROVIDED BY SPONSOR
     Dates: start: 20130310
  24. PIPERACILLIN SODIUM/TAZOBACTAM SODIUM [Suspect]
     Active Substance: PIPERACILLIN SODIUM\TAZOBACTAM SODIUM
     Indication: PRODUCT USED FOR UNKNOWN INDICATION
     Dosage: 4 G, QD
     Route: 042
     Dates: start: 20130311
  25. SULFAMETHOXAZOLE/TRIMETHOPRIM [Suspect]
     Active Substance: SULFAMETHOXAZOLE\TRIMETHOPRIM
     Indication: PRODUCT USED FOR UNKNOWN INDICATION
     Dosage: 3 DF, QD, ROUTE OF ADMINISTRATION: INFORMATION NOT PROVIDED BY SPONSOR
     Dates: start: 20130219, end: 20130310
  26. VALGANCICLOVIR HYDROCHLORIDE. [Suspect]
     Active Substance: VALGANCICLOVIR HYDROCHLORIDE
     Indication: PRODUCT USED FOR UNKNOWN INDICATION
     Dosage: 900 MG, QD, DRUG USE FOR UNKNOWN INDICATION:
     Dates: start: 20130305, end: 20130306
  27. GANCICLOVIR. [Suspect]
     Active Substance: GANCICLOVIR
     Indication: PRODUCT USED FOR UNKNOWN INDICATION
     Dosage: 50 MG, QD
     Route: 042
     Dates: start: 20130306, end: 20130311
  28. CIPROFLOXACIN. [Concomitant]
     Active Substance: CIPROFLOXACIN
     Dosage: ROUTE OF ADMINISTRATION: INFORMATION NOT PROVIDED BY SPONSOR
     Dates: start: 20130312
  29. CICLOSPORIN A [Concomitant]
     Active Substance: CYCLOSPORINE
     Dosage: 300 MG,ROUTE OF ADMINISTRATION: INFORMATION NOT PROVIDED BY SPONSOR
  30. PANTOPRAZOLE [Concomitant]
     Active Substance: PANTOPRAZOLE
     Dosage: 20 MG, ROUTE OF ADMINISTRATION: INFORMATION NOT PROVIDED BY SPONSOR
  31. FOLIC ACID. [Concomitant]
     Active Substance: FOLIC ACID

REACTIONS (3)
  - Pallor [Fatal]
  - Toxic epidermal necrolysis [Fatal]
  - Rash [Fatal]

NARRATIVE: CASE EVENT DATE: 20130310
